FAERS Safety Report 9169639 (Version 3)
Quarter: 2013Q2

REPORT INFORMATION
  Report Type: Report from Study
  Country: IT (occurrence: IT)
  Receive Date: 20130318
  Receipt Date: 20130511
  Transmission Date: 20140414
  Serious: Yes (Hospitalization, Other)
  Sender: FDA-Public Use
  Company Number: IT-009507513-1303ITA007427

PATIENT
  Age: 71 Year
  Sex: Female
  Weight: 91 kg

DRUGS (12)
  1. SIMVASTATIN [Suspect]
     Indication: ACUTE CORONARY SYNDROME
     Dosage: 40 MG, QD
     Route: 048
     Dates: start: 20100212
  2. CARVEDILOL [Concomitant]
     Dosage: UNK
     Route: 048
     Dates: start: 20100212
  3. ASPIRIN [Concomitant]
     Dosage: 100 MG DALY DOSE
     Route: 048
     Dates: start: 20100212
  4. ENALAPRIL MALEATE [Concomitant]
     Dosage: UNK
     Route: 048
     Dates: start: 20100212
  5. LEVOTHYROXINE SODIUM [Concomitant]
     Dosage: UNK
     Route: 048
     Dates: start: 20120217
  6. PANTOPRAZOLE [Concomitant]
     Dosage: UNK
     Route: 048
     Dates: start: 20110620
  7. RANOLAZINE HYDROCHLORIDE [Concomitant]
     Dosage: UNK
     Route: 048
     Dates: start: 20110520
  8. NITROGLYCERIN [Concomitant]
     Dosage: UNK
     Dates: start: 20100424
  9. FUROSEMIDE [Concomitant]
     Dosage: UNK
     Route: 048
     Dates: start: 20110214
  10. METFORMIN [Concomitant]
     Dosage: UNK
     Route: 048
     Dates: start: 20100212
  11. GLYBURIDE [Concomitant]
     Dosage: UNK
     Route: 048
     Dates: start: 20100212
  12. HYDROCHLOROTHIAZIDE [Concomitant]
     Dosage: UNK
     Route: 048
     Dates: start: 20100212

REACTIONS (1)
  - Bladder transitional cell carcinoma [Recovered/Resolved]
